FAERS Safety Report 17711640 (Version 1)
Quarter: 2020Q2

REPORT INFORMATION
  Report Type: Spontaneous
  Country: US (occurrence: US)
  Receive Date: 20200424
  Receipt Date: 20200424
  Transmission Date: 20200714
  Serious: No
  Sender: FDA-Public Use
  Company Number: None

PATIENT
  Sex: Female

DRUGS (12)
  1. LISINOPRIL. [Concomitant]
     Active Substance: LISINOPRIL
  2. AMLODIPINE [Concomitant]
     Active Substance: AMLODIPINE BESYLATE
  3. ANASTROZOLE. [Concomitant]
     Active Substance: ANASTROZOLE
  4. OXYCODONE [Concomitant]
     Active Substance: OXYCODONE
  5. IBRANCE [Suspect]
     Active Substance: PALBOCICLIB
     Indication: PRODUCT USED FOR UNKNOWN INDICATION
     Dosage: ?          OTHER DOSE:1CAP ;OTHER ROUTE:PO ON 21D OFF 7D?
     Route: 048
     Dates: start: 20191127
  6. LETROZOLE. [Concomitant]
     Active Substance: LETROZOLE
  7. METRONIDAZOL [Concomitant]
     Active Substance: METRONIDAZOLE
  8. NORTRIPTYLIN [Concomitant]
     Active Substance: NORTRIPTYLINE
  9. PEG-3350/KCL SOL/SODIUM [Concomitant]
  10. HYDROCO/APAP [Concomitant]
     Active Substance: ACETAMINOPHEN\HYDROCODONE
  11. PREGABALIN. [Concomitant]
     Active Substance: PREGABALIN
  12. VITAMIN D3 [Concomitant]
     Active Substance: CHOLECALCIFEROL

REACTIONS (2)
  - Colitis [None]
  - White blood cell count decreased [None]
